FAERS Safety Report 7968411 (Version 3)
Quarter: 2012Q4

REPORT INFORMATION
  Report Type: Report from Study
  Country: JP (occurrence: JP)
  Receive Date: 20110601
  Receipt Date: 20121127
  Transmission Date: 20130627
  Serious: Yes (Hospitalization, Other)
  Sender: FDA-Public Use
  Company Number: PHHY2011JP20324

PATIENT
  Age: 56 Year
  Sex: Female

DRUGS (14)
  1. AMN107 [Suspect]
     Indication: CHRONIC MYELOID LEUKAEMIA
     Dosage: 400 mg, QD
     Route: 048
     Dates: start: 20100713, end: 20100928
  2. AMN107 [Suspect]
     Dosage: 400 mg, QD
     Route: 048
     Dates: start: 20101019
  3. BREDININ [Suspect]
     Dosage: 150 mg, QD
     Route: 048
     Dates: end: 20100825
  4. BREDININ [Suspect]
     Dosage: 50 mg, daily
     Route: 048
     Dates: start: 20100826
  5. MOBIC [Concomitant]
     Dosage: 10 mg, UNK
     Route: 048
  6. PREDNISOLONE [Concomitant]
     Dosage: 4 mg, QD
     Route: 048
  7. ALFAROL [Concomitant]
     Dosage: 0.5 ug, UNK
     Route: 048
  8. ASPARA [Concomitant]
     Dosage: 200 mg, UNK
     Route: 048
  9. ARTIST [Concomitant]
     Dosage: 2.5 mg, UNK
     Route: 048
     Dates: start: 20100810
  10. ADALAT CR [Concomitant]
     Dosage: 60 mg, UNK
     Route: 048
  11. BLOPRESS [Concomitant]
     Dosage: 8 mg, UNK
     Route: 048
  12. PARIET [Concomitant]
     Dosage: 10 mg, UNK
     Route: 048
     Dates: start: 20120515
  13. ENBREL [Concomitant]
     Dosage: 25 mg, UNK
     Dates: start: 20111202
  14. EPINASTINE HYDROCHLORIDE [Concomitant]
     Dosage: 20 mg, UNK
     Dates: start: 20120710

REACTIONS (3)
  - Pancreatic enzymes increased [Recovered/Resolved]
  - Rheumatoid arthritis [Recovered/Resolved]
  - Hyperuricaemia [Recovered/Resolved]
